FAERS Safety Report 6157120-3 (Version None)
Quarter: 2009Q2

REPORT INFORMATION
  Report Type: 
  Country: None (occurrence: None)
  Receive Date: 20090413
  Receipt Date: 20090406
  Transmission Date: 20091009
  Serious: Yes (Hospitalization)
  Sender: FDA-Public Use
  Company Number: 237177

PATIENT
  Age: 65 Year
  Sex: Female

DRUGS (16)
  1. CYTARABINE [Suspect]
     Indication: ACUTE MYELOID LEUKAEMIA
     Dosage: 20 MG/M2, 1 CYCLE (DAYS 1-10 OF A 28-DAY CYCLE)); 20 MG/M2 (^QD^); 20 MG/M2 (^QD:) SUBCUTANEOUS;
     Route: 058
     Dates: start: 20070115, end: 20070125
  2. CYTARABINE [Suspect]
     Indication: ACUTE MYELOID LEUKAEMIA
     Dosage: 20 MG/M2, 1 CYCLE (DAYS 1-10 OF A 28-DAY CYCLE)); 20 MG/M2 (^QD^); 20 MG/M2 (^QD:) SUBCUTANEOUS;
     Route: 058
     Dates: start: 20061102
  3. CYTARABINE [Suspect]
     Indication: ACUTE MYELOID LEUKAEMIA
     Dosage: 20 MG/M2, 1 CYCLE (DAYS 1-10 OF A 28-DAY CYCLE)); 20 MG/M2 (^QD^); 20 MG/M2 (^QD:) SUBCUTANEOUS;
     Route: 058
     Dates: start: 20061102
  4. CYTARABINE [Suspect]
     Indication: ACUTE MYELOID LEUKAEMIA
     Dosage: 20 MG/M2, 1 CYCLE (DAYS 1-10 OF A 28-DAY CYCLE)); 20 MG/M2 (^QD^); 20 MG/M2 (^QD:) SUBCUTANEOUS;
     Route: 058
     Dates: start: 20061204
  5. NYSTATIN [Concomitant]
  6. RIFATER [Concomitant]
  7. ETHAMBUTOL HCL [Concomitant]
  8. VITAMIN B6 [Concomitant]
  9. (DOMPERIDONE) [Concomitant]
  10. PYRIDOXINE HYDROCHLORIDE [Concomitant]
  11. (SENNOSIDE B) [Concomitant]
  12. METFORMIN HCL [Concomitant]
  13. INDOMETHACIN [Concomitant]
  14. ISONIAZID [Concomitant]
  15. RIFAMPICIN [Concomitant]
  16. DEXAMETHASONE 4MG TAB [Concomitant]

REACTIONS (20)
  - ANGIOEDEMA [None]
  - CONDITION AGGRAVATED [None]
  - DRUG INEFFECTIVE [None]
  - DYSPHONIA [None]
  - FEBRILE NEUTROPENIA [None]
  - HAEMATOCRIT DECREASED [None]
  - HAEMOGLOBIN DECREASED [None]
  - LYMPHADENOPATHY [None]
  - MONOCYTE PERCENTAGE INCREASED [None]
  - ORAL CANDIDIASIS [None]
  - PHARYNGEAL ABSCESS [None]
  - PHARYNGITIS [None]
  - PLATELET COUNT DECREASED [None]
  - PNEUMONIA [None]
  - RED BLOOD CELL COUNT DECREASED [None]
  - SEPTIC SHOCK [None]
  - STRIDOR [None]
  - TONSILLITIS [None]
  - WHEEZING [None]
  - WHITE BLOOD CELL COUNT DECREASED [None]
